FAERS Safety Report 11538471 (Version 1)
Quarter: 2015Q3

REPORT INFORMATION
  Report Type: Spontaneous
  Country: US (occurrence: US)
  Receive Date: 20150922
  Receipt Date: 20150922
  Transmission Date: 20151125
  Serious: No
  Sender: FDA-Public Use
  Company Number: US-ENDO PHARMACEUTICALS INC.-SUMA20140025

PATIENT
  Sex: Female

DRUGS (1)
  1. SUMAVEL DOSEPRO [Suspect]
     Active Substance: SUMATRIPTAN SUCCINATE
     Indication: HEADACHE
     Route: 065

REACTIONS (7)
  - Dizziness [Unknown]
  - Injection site urticaria [Unknown]
  - Nausea [Unknown]
  - Vomiting [Unknown]
  - Injection site haemorrhage [Unknown]
  - Headache [Unknown]
  - Drug ineffective [Unknown]
